FAERS Safety Report 5453094-9 (Version None)
Quarter: 2007Q3

REPORT INFORMATION
  Report Type: 
  Country: None (occurrence: None)
  Receive Date: 20070914
  Receipt Date: 20070905
  Transmission Date: 20080115
  Serious: Yes (Other)
  Sender: FDA-Public Use
  Company Number: JP-PFIZER INC-2007054290

PATIENT
  Sex: Female
  Weight: 67 kg

DRUGS (4)
  1. LIPITOR [Suspect]
     Indication: HYPERLIPIDAEMIA
     Route: 048
     Dates: start: 20070217, end: 20070621
  2. CONIEL [Suspect]
     Indication: HYPERTENSION
     Route: 048
     Dates: start: 20060110, end: 20070621
  3. AMLODIPINE [Concomitant]
     Indication: HYPERTENSION
     Route: 048
     Dates: start: 20070622, end: 20070624
  4. CANDESARTAN CILEXETIL [Concomitant]
     Indication: HYPERTENSION

REACTIONS (6)
  - DISCOMFORT [None]
  - DRUG INEFFECTIVE [None]
  - FACIAL SPASM [None]
  - HYPERLIPIDAEMIA [None]
  - PHARYNGOLARYNGEAL PAIN [None]
  - RHABDOMYOLYSIS [None]
